FAERS Safety Report 19275575 (Version 8)
Quarter: 2025Q4

REPORT INFORMATION
  Report Type: Report from Study
  Country: US (occurrence: US)
  Receive Date: 20210519
  Receipt Date: 20251231
  Transmission Date: 20260117
  Serious: Yes (Hospitalization, Other)
  Sender: PFIZER
  Company Number: US-PFIZER INC-2021513652

PATIENT
  Age: 38 Year
  Sex: Male

DRUGS (1)
  1. XYNTHA [Suspect]
     Active Substance: MOROCTOCOG ALFA
     Indication: Haemorrhage
     Dosage: INJECT 3000 IU (+/-10% ) DAILY PRN (AS NEEDED)

REACTIONS (2)
  - Haemorrhage [Unknown]
  - Oral surgery [Unknown]
